FAERS Safety Report 8606169-7 (Version None)
Quarter: 2012Q3

REPORT INFORMATION
  Report Type: 
  Country: None (occurrence: None)
  Receive Date: 20120820
  Receipt Date: 19931115
  Transmission Date: 20120928
  Serious: Yes (Death, Hospitalization, Other)
  Sender: FDA-Public Use
  Company Number: US-ROCHE-1100572

PATIENT
  Age: 58 Year
  Sex: Male

DRUGS (11)
  1. MEPERGAN [Concomitant]
  2. LIDOCAINE [Concomitant]
     Route: 041
  3. CAPOTEN [Concomitant]
     Dosage: INCREASED
  4. TRIAVIL [Concomitant]
     Route: 041
  5. LIDOCAINE [Concomitant]
     Dosage: INCREASED DOSE
  6. DIGOXIN [Concomitant]
  7. CAPOTEN [Concomitant]
     Dosage: VERY LOW DOSE
  8. ACTIVASE [Suspect]
     Indication: ACUTE MYOCARDIAL INFARCTION
  9. HEPARIN [Concomitant]
     Route: 042
  10. CARDIZEM [Concomitant]
     Dates: start: 19930522
  11. MORPHINE SULFATE [Concomitant]

REACTIONS (7)
  - VOMITING [None]
  - VENTRICULAR TACHYCARDIA [None]
  - NAUSEA [None]
  - ASTHENIA [None]
  - DEATH [None]
  - CARDIOGENIC SHOCK [None]
  - HYPOTENSION [None]
